FAERS Safety Report 8045081-1 (Version None)
Quarter: 2012Q1

REPORT INFORMATION
  Report Type: 
  Country: None (occurrence: None)
  Receive Date: 20120113
  Receipt Date: 20120110
  Transmission Date: 20120608
  Serious: Yes (Other)
  Sender: FDA-Public Use
  Company Number: PHEH2011US009438

PATIENT
  Sex: Female
  Weight: 15 kg

DRUGS (8)
  1. NEILMED SINUS RINSE [Concomitant]
     Indication: SINUSITIS
     Dosage: 120 ML, QD
     Route: 045
  2. PULMOZYME [Concomitant]
     Indication: CYSTIC FIBROSIS
     Dosage: 2.5 MG, QD
  3. ALBUTEROL [Concomitant]
     Dosage: 25 MG, 2-4 DAILY
  4. TOBI [Suspect]
     Indication: CYSTIC FIBROSIS
     Dosage: 300 MG, BID 28 DAYS
     Dates: start: 20111024
  5. TOBI [Suspect]
     Indication: COUGH
  6. TOBI [Suspect]
     Indication: PSEUDOMONAS TEST POSITIVE
  7. PREVACID [Concomitant]
     Dosage: 5 MG, QD
     Route: 048
  8. CREON [Concomitant]
     Indication: CYSTIC FIBROSIS
     Route: 048

REACTIONS (6)
  - PSEUDOMONAS INFECTION [None]
  - EYE INFECTION [None]
  - EAR INFECTION [None]
  - RHINITIS [None]
  - UPPER RESPIRATORY TRACT INFECTION [None]
  - PHARYNGITIS [None]
